FAERS Safety Report 5563507-X (Version None)
Quarter: 2007Q4

REPORT INFORMATION
  Report Type: 
  Country: None (occurrence: None)
  Receive Date: 20071217
  Receipt Date: 20070621
  Transmission Date: 20080405
  Serious: No
  Sender: FDA-Public Use
  Company Number: US-ASTRAZENECA-2007UW14953

PATIENT
  Age: 60 Year
  Sex: Female
  Weight: 73.9 kg

DRUGS (4)
  1. CRESTOR [Suspect]
     Indication: BLOOD CHOLESTEROL INCREASED
     Route: 048
     Dates: start: 20070301
  2. METAMUCIL [Concomitant]
  3. ALLEGRA D 24 HOUR [Concomitant]
  4. VITAMINS [Concomitant]

REACTIONS (2)
  - CONSTIPATION [None]
  - HIGH DENSITY LIPOPROTEIN DECREASED [None]
